FAERS Safety Report 21688026 (Version 1)
Quarter: 2022Q4

REPORT INFORMATION
  Report Type: Spontaneous
  Country: GB (occurrence: GB)
  Receive Date: 20221206
  Receipt Date: 20221206
  Transmission Date: 20230112
  Serious: Yes (Other)
  Sender: FDA-Public Use
  Company Number: None

PATIENT
  Age: 76 Year
  Sex: Female
  Weight: 79 kg

DRUGS (12)
  1. DOXYCYCLINE [Suspect]
     Active Substance: DOXYCYCLINE
     Indication: Product used for unknown indication
     Dosage: 2 DOSAGE FORM, QD (100MG TAKE TWO NOW THEN ONE DAILY FOR 4 DAYS TO TREAT)
     Route: 065
     Dates: start: 20221122
  2. CLOBETASOL PROPIONATE [Concomitant]
     Active Substance: CLOBETASOL PROPIONATE
     Dosage: UNK (APPLY TWICE A WEEK AS DIRECTED)
     Route: 065
     Dates: start: 20221027
  3. DOCUSATE SODIUM [Concomitant]
     Active Substance: DOCUSATE SODIUM
     Dosage: 1 DOSAGE FORM (TAKE ONE CAPSULE 2-4 TIMES/DAY)
     Route: 065
     Dates: start: 20220224
  4. FLUTICASONE FUROATE [Concomitant]
     Active Substance: FLUTICASONE FUROATE
     Dosage: UNK UNK, BID (USE TWICE DAILY)
     Route: 065
     Dates: start: 20220224, end: 20220906
  5. LACTULOSE [Concomitant]
     Active Substance: LACTULOSE
     Dosage: 15 MILLILITER, BID
     Route: 065
     Dates: start: 20220224
  6. LORATADINE [Concomitant]
     Active Substance: LORATADINE
     Indication: Pruritus
     Dosage: 1 DOSAGE FORM, QD
     Route: 065
     Dates: start: 20220224
  7. OMEPRAZOLE [Concomitant]
     Active Substance: OMEPRAZOLE
     Dosage: 1 DOSAGE FORM, QD (BEFORE BREAKFAST)
     Route: 065
     Dates: start: 20220824, end: 20220921
  8. RIVAROXABAN [Concomitant]
     Active Substance: RIVAROXABAN
     Dosage: 1 DOSAGE FORM, QD (AFTER FOOD)
     Route: 065
     Dates: start: 20220224
  9. ALBUTEROL [Concomitant]
     Active Substance: ALBUTEROL
     Dosage: 2 DOSAGE FORM, PRN  (VIA SPACER)
     Route: 055
     Dates: start: 20220224
  10. SENNA [Concomitant]
     Active Substance: SENNA LEAF\SENNOSIDES\SENNOSIDES A AND B
     Dosage: 2 DOSAGE FORM, PM (AT NIGHT)
     Route: 065
     Dates: start: 20220224
  11. SYMBICORT [Concomitant]
     Active Substance: BUDESONIDE\FORMOTEROL FUMARATE DIHYDRATE
     Indication: Asthma
     Dosage: 2 DOSAGE FORM, BID (VIA SPACER)
     Route: 065
     Dates: start: 20220224
  12. VAGIFEM [Concomitant]
     Active Substance: ESTRADIOL
     Dosage: 1 DOSAGE FORM (2 TIMES A WEEK FOR 3 MONTHS  )
     Route: 065
     Dates: start: 20220224, end: 20220906

REACTIONS (2)
  - Hot flush [Recovered/Resolved]
  - Rash pruritic [Recovered/Resolved]

NARRATIVE: CASE EVENT DATE: 20221122
